FAERS Safety Report 16842866 (Version 1)
Quarter: 2019Q3

REPORT INFORMATION
  Report Type: Spontaneous
  Country: US (occurrence: US)
  Receive Date: 20190924
  Receipt Date: 20190924
  Transmission Date: 20191005
  Serious: Yes (Hospitalization)
  Sender: FDA-Public Use
  Company Number: US-TWI PHARMACEUTICAL, INC-2019SCTW000020

PATIENT

DRUGS (4)
  1. GUANFACINE. [Suspect]
     Active Substance: GUANFACINE
     Dosage: 189 MG
     Route: 048
  2. OLANZAPINE. [Suspect]
     Active Substance: OLANZAPINE
     Indication: PRODUCT USED FOR UNKNOWN INDICATION
     Dosage: UNK
     Route: 048
  3. GUANFACINE. [Suspect]
     Active Substance: GUANFACINE
     Indication: PRODUCT USED FOR UNKNOWN INDICATION
     Dosage: UNK
     Route: 048
  4. OLANZAPINE. [Suspect]
     Active Substance: OLANZAPINE
     Dosage: 340 MG
     Route: 048

REACTIONS (8)
  - Mental status changes [Recovered/Resolved]
  - Bradycardia [Recovered/Resolved]
  - Agitation [Unknown]
  - Orthostatic hypotension [Recovered/Resolved]
  - Suicide attempt [Unknown]
  - Hallucination [Unknown]
  - Sinus arrest [Recovered/Resolved]
  - Intentional overdose [Unknown]
